FAERS Safety Report 4980586-9 (Version None)
Quarter: 2006Q2

REPORT INFORMATION
  Report Type: 
  Country: None (occurrence: None)
  Receive Date: 20060424
  Receipt Date: 20051020
  Transmission Date: 20061013
  Serious: Yes (Hospitalization, Other)
  Sender: FDA-Public Use
  Company Number: US-MERCK-0510USA08454

PATIENT
  Age: 64 Year
  Sex: Female

DRUGS (15)
  1. VIOXX [Suspect]
     Indication: OSTEOARTHRITIS
     Route: 048
     Dates: start: 20000614, end: 20040715
  2. AREDIA [Concomitant]
     Route: 065
  3. ALLEGRA [Concomitant]
     Route: 065
  4. ZOCOR [Concomitant]
     Indication: BLOOD CHOLESTEROL
     Route: 065
     Dates: start: 20000316, end: 20040514
  5. LASIX [Concomitant]
     Indication: OEDEMA PERIPHERAL
     Route: 065
     Dates: start: 20020717, end: 20050713
  6. NORVASC [Concomitant]
     Indication: GASTROOESOPHAGEAL REFLUX DISEASE
     Route: 065
     Dates: start: 20000113, end: 20040217
  7. IMIPRAMINE HYDROCHLORIDE [Concomitant]
     Indication: ANTIDEPRESSANT THERAPY
     Route: 065
     Dates: start: 20000210, end: 20041207
  8. TRAZODONE HYDROCHLORIDE [Concomitant]
     Indication: ANTIDEPRESSANT THERAPY
     Route: 065
     Dates: start: 20011010, end: 20050815
  9. PRILOSEC [Concomitant]
     Route: 065
  10. NITRO-SPRAY [Concomitant]
     Indication: ANGINA PECTORIS
     Route: 065
     Dates: start: 20000210, end: 20040217
  11. CLIMARA [Concomitant]
     Indication: HORMONE REPLACEMENT THERAPY
     Route: 065
     Dates: start: 20011213, end: 20020904
  12. PREMARIN [Concomitant]
     Indication: HORMONE REPLACEMENT THERAPY
     Route: 065
     Dates: start: 20000309, end: 20010327
  13. MERIDIA [Concomitant]
     Indication: OBESITY
     Route: 065
     Dates: start: 20011026, end: 20030221
  14. MERIDIA [Concomitant]
     Indication: ANTIDEPRESSANT THERAPY
     Route: 065
     Dates: start: 20011026, end: 20030221
  15. XANAX [Concomitant]
     Indication: ANXIETY DISORDER
     Route: 065
     Dates: start: 20000316, end: 20050713

REACTIONS (14)
  - BUNION [None]
  - CARDIOVASCULAR DISORDER [None]
  - CAROTID ARTERY DISEASE [None]
  - CEREBROVASCULAR ACCIDENT [None]
  - CEREBROVASCULAR DISORDER [None]
  - DYSPEPSIA [None]
  - FIBROMYALGIA [None]
  - HYPERTENSION [None]
  - ILEAL STENOSIS [None]
  - LIMB INJURY [None]
  - MIGRAINE [None]
  - VITREOUS FLOATERS [None]
  - WEIGHT INCREASED [None]
  - WOUND INFECTION [None]
